FAERS Safety Report 11776793 (Version 1)
Quarter: 2015Q4

REPORT INFORMATION
  Report Type: Spontaneous
  Country: US (occurrence: US)
  Receive Date: 20151125
  Receipt Date: 20151125
  Transmission Date: 20160304
  Serious: No
  Sender: FDA-Public Use
  Company Number: US-TEVA-552100USA

PATIENT
  Sex: Female

DRUGS (1)
  1. BUDESONIDE. [Suspect]
     Active Substance: BUDESONIDE
     Dosage: 0.5MG/2ML
     Route: 065

REACTIONS (4)
  - Medication residue present [Unknown]
  - Glossitis [Unknown]
  - Product physical issue [Unknown]
  - Dysphonia [Unknown]

NARRATIVE: CASE EVENT DATE: 20150328
